FAERS Safety Report 18069201 (Version 3)
Quarter: 2022Q4

REPORT INFORMATION
  Report Type: Report from Study
  Country: US (occurrence: US)
  Receive Date: 20200725
  Receipt Date: 20221019
  Transmission Date: 20230113
  Serious: Yes (Other)
  Sender: FDA-Public Use
  Company Number: US-SHIRE-US202022877

PATIENT
  Age: 6 Year
  Sex: Male

DRUGS (6)
  1. ADVATE [Suspect]
     Active Substance: ANTIHEMOPHILIC FACTOR, HUMAN RECOMBINANT
     Indication: Product used for unknown indication
     Dosage: 375 INTERNATIONAL UNIT
     Route: 042
  2. ADVATE [Suspect]
     Active Substance: ANTIHEMOPHILIC FACTOR, HUMAN RECOMBINANT
     Indication: Product used for unknown indication
     Dosage: 375 INTERNATIONAL UNIT
     Route: 042
  3. ADVATE [Suspect]
     Active Substance: ANTIHEMOPHILIC FACTOR, HUMAN RECOMBINANT
     Indication: Product used for unknown indication
     Dosage: 375 INTERNATIONAL UNIT
     Route: 042
  4. ADVATE [Suspect]
     Active Substance: ANTIHEMOPHILIC FACTOR, HUMAN RECOMBINANT
     Dosage: 600 INTERNATIONAL UNIT
     Route: 042
  5. ADVATE [Suspect]
     Active Substance: ANTIHEMOPHILIC FACTOR, HUMAN RECOMBINANT
     Dosage: 600 INTERNATIONAL UNIT
     Route: 042
  6. ADVATE [Suspect]
     Active Substance: ANTIHEMOPHILIC FACTOR, HUMAN RECOMBINANT
     Dosage: 600 INTERNATIONAL UNIT
     Route: 042

REACTIONS (7)
  - Haemorrhage [Unknown]
  - Haemarthrosis [Recovering/Resolving]
  - Face injury [Unknown]
  - Fall [Unknown]
  - Head injury [Unknown]
  - Swelling face [Unknown]
  - Joint injury [Unknown]

NARRATIVE: CASE EVENT DATE: 20200301
